FAERS Safety Report 6129013-9 (Version None)
Quarter: 2009Q1

REPORT INFORMATION
  Report Type: 
  Country: None (occurrence: None)
  Receive Date: 20090324
  Receipt Date: 20090316
  Transmission Date: 20090719
  Serious: Yes (Other)
  Sender: FDA-Public Use
  Company Number: PHEH2009US02662

PATIENT
  Sex: Male

DRUGS (3)
  1. NEORAL [Suspect]
     Indication: LUNG TRANSPLANT
     Dosage: 75 MG, UNK
     Route: 048
  2. NEORAL [Suspect]
     Dosage: 750 MG, UNK
     Route: 048
  3. CHARCOAL PREPARATIONS [Suspect]

REACTIONS (1)
  - INCORRECT DOSE ADMINISTERED [None]
